FAERS Safety Report 10964278 (Version 2)
Quarter: 2015Q2

REPORT INFORMATION
  Report Type: Spontaneous
  Country: US (occurrence: US)
  Receive Date: 20150329
  Receipt Date: 20150524
  Transmission Date: 20150821
  Serious: No
  Sender: FDA-Public Use
  Company Number: US-JNJFOC-20140208418

PATIENT
  Sex: Female
  Weight: 65.77 kg

DRUGS (1)
  1. FENTANYL TRANSDERMAL SYSTEM [Suspect]
     Active Substance: FENTANYL
     Indication: PAIN
     Dosage: ABOUT THREE YEARS AGO
     Route: 062
     Dates: start: 2011, end: 2011

REACTIONS (2)
  - Application site scab [Recovered/Resolved]
  - Dermatitis contact [Recovered/Resolved]
